FAERS Safety Report 20545952 (Version 1)
Quarter: 2022Q1

REPORT INFORMATION
  Report Type: Report from Study
  Country: CA (occurrence: CA)
  Receive Date: 20220303
  Receipt Date: 20220303
  Transmission Date: 20220423
  Serious: Yes (Hospitalization)
  Sender: FDA-Public Use
  Company Number: CA-MYLANLABS-2022M1016557

PATIENT
  Age: 6 Decade
  Sex: Male

DRUGS (5)
  1. CLOZAPINE [Interacting]
     Active Substance: CLOZAPINE
     Indication: Schizoaffective disorder bipolar type
     Dosage: 125 MILLIGRAM, BID
     Route: 065
  2. CLOZAPINE [Interacting]
     Active Substance: CLOZAPINE
     Dosage: 50 MILLIGRAM
     Route: 065
  3. FLUVOXAMINE [Interacting]
     Active Substance: FLUVOXAMINE
     Indication: Schizoaffective disorder bipolar type
     Dosage: 200 MILLIGRAM
     Route: 065
  4. SERTRALINE [Concomitant]
     Active Substance: SERTRALINE HYDROCHLORIDE
     Indication: Schizoaffective disorder bipolar type
     Dosage: 75 MILLIGRAM
     Route: 065
  5. BUPROPION [Concomitant]
     Active Substance: BUPROPION
     Indication: Schizoaffective disorder bipolar type
     Dosage: 300 MILLIGRAM
     Route: 065

REACTIONS (5)
  - Sedation [Unknown]
  - Orthostatic hypotension [Unknown]
  - Enuresis [Unknown]
  - Labelled drug-drug interaction medication error [Unknown]
  - Drug level increased [Unknown]
